FAERS Safety Report 9313174 (Version 2)
Quarter: 2013Q3

REPORT INFORMATION
  Report Type: Report from Study
  Country: US (occurrence: US)
  Receive Date: 20130528
  Receipt Date: 20130828
  Transmission Date: 20140515
  Serious: No
  Sender: FDA-Public Use
  Company Number: US-ABBOTT-13P-163-1048577-00

PATIENT
  Sex: Male
  Weight: 81.72 kg

DRUGS (4)
  1. ANDROGEL 1.62% [Suspect]
     Indication: BLOOD TESTOSTERONE DECREASED
     Dosage: 3 PUMPS
     Route: 061
     Dates: start: 201111
  2. VYTORIN [Concomitant]
     Indication: BLOOD CHOLESTEROL INCREASED
  3. VALACYCLOVIR HYDROCHLORIDE [Concomitant]
     Indication: ORAL HERPES
  4. LEVITRA [Concomitant]
     Indication: ERECTILE DYSFUNCTION

REACTIONS (4)
  - Hyposmia [Not Recovered/Not Resolved]
  - Hypogeusia [Not Recovered/Not Resolved]
  - Upper respiratory tract infection [Not Recovered/Not Resolved]
  - Rhinorrhoea [Not Recovered/Not Resolved]
